FAERS Safety Report 4348572-X (Version None)
Quarter: 2004Q2

REPORT INFORMATION
  Report Type: 
  Country: None (occurrence: None)
  Receive Date: 20040422
  Receipt Date: 20040414
  Transmission Date: 20050107
  Serious: Yes (Other)
  Sender: FDA-Public Use
  Company Number: JP-SHR-04-022722

PATIENT
  Age: 62 Year
  Sex: Female

DRUGS (8)
  1. PROSCOPE 300(IOPROMIDE) N/A [Suspect]
     Indication: COMPUTERISED TOMOGRAM
     Dosage: 100 ML, 1 DOSE, INTRAVENOUS
     Route: 042
     Dates: start: 20040310, end: 20040310
  2. HUMACART-N(INSULIN HUMAN) [Suspect]
     Indication: DIABETES MELLITUS INSULIN-DEPENDENT
     Dosage: 10 IU, SUBCUTANEOUS
     Route: 058
  3. LEVOFLOXACIN [Concomitant]
  4. MEVALOTIN [Concomitant]
  5. PRAVASTATIN SODIUM [Concomitant]
  6. KALLIKREIN(KALLIDINOGENASE) [Concomitant]
  7. METHYLCOBAL(MECOBALAMIN) [Concomitant]
  8. EUGLUCON(GLIBENCLAMIDE) [Concomitant]

REACTIONS (5)
  - ANAPHYLACTIC SHOCK [None]
  - BLOOD PRESSURE DECREASED [None]
  - IODINE ALLERGY [None]
  - PRURITUS [None]
  - SNEEZING [None]
